FAERS Safety Report 8337828-1 (Version None)
Quarter: 2012Q1

REPORT INFORMATION
  Report Type: 
  Country: None (occurrence: None)
  Receive Date: 20120329
  Receipt Date: 20100913
  Transmission Date: 20120608
  Serious: Yes (Hospitalization)
  Sender: FDA-Public Use
  Company Number: PHHY2010US61216

PATIENT
  Age: 76 Year
  Sex: Male
  Weight: 59.9 kg

DRUGS (4)
  1. ANTIHYPERTENSIVE DRUGS (NO INGREDIENTS/SUBSTANCES) [Concomitant]
  2. ANTIDEPRESSANTS (NO INGREDIENTS/SUBSTANCES) [Concomitant]
  3. EXELON [Suspect]
     Indication: DEMENTIA ALZHEIMER'S TYPE
     Dosage: UNK, TRANSDERMAL 9.5 MG, QD, TRANSDERMAL
     Route: 062
     Dates: end: 20100815
  4. EXELON [Suspect]
     Indication: DEMENTIA ALZHEIMER'S TYPE
     Dosage: UNK, TRANSDERMAL 9.5 MG, QD, TRANSDERMAL
     Route: 062
     Dates: start: 20100416

REACTIONS (2)
  - NAUSEA [None]
  - VOMITING [None]
